FAERS Safety Report 20571980 (Version 1)
Quarter: 2022Q1

REPORT INFORMATION
  Report Type: Spontaneous
  Country: US (occurrence: None)
  Receive Date: 20220308
  Receipt Date: 20220308
  Transmission Date: 20220423
  Serious: Yes (Death)
  Sender: FDA-Public Use
  Company Number: None

PATIENT
  Age: 65 Year
  Sex: Male

DRUGS (6)
  1. TEMOZOLOMIDE [Suspect]
     Active Substance: TEMOZOLOMIDE
     Indication: Lung carcinoma cell type unspecified stage 0
     Dosage: TAKE 2 CAPSULES (280 MG) BY MOUTH DAILY FOR 5 DAYS OF EACH 28 DAY CYCLE?
     Route: 048
     Dates: start: 20211229, end: 20220305
  2. ALBUTEROL AER HFA [Concomitant]
  3. ALPRAZOLAM TAB 0.25MG [Concomitant]
  4. BUTALBITAL AND ACETAMINOPHEN [Concomitant]
     Active Substance: ACETAMINOPHEN\BUTALBITAL
  5. FUROSEMIDE TAB 20MG [Concomitant]
  6. GABAPENTIN CAP 100MG [Concomitant]

REACTIONS (1)
  - Death [None]

NARRATIVE: CASE EVENT DATE: 20220305
